FAERS Safety Report 5485454-4 (Version None)
Quarter: 2007Q4

REPORT INFORMATION
  Report Type: 
  Country: None (occurrence: None)
  Receive Date: 20071010
  Receipt Date: 20071010
  Transmission Date: 20080405
  Serious: Yes (Other)
  Sender: FDA-Public Use
  Company Number: None

PATIENT
  Age: 54 Year
  Sex: Female
  Weight: 52.6173 kg

DRUGS (1)
  1. XIFAXAN [Suspect]
     Indication: POUCHITIS
     Dosage: 1 TABLET

REACTIONS (2)
  - DYSPHONIA [None]
  - THROAT TIGHTNESS [None]
